FAERS Safety Report 7686553-9 (Version None)
Quarter: 2011Q3

REPORT INFORMATION
  Report Type: 
  Country: None (occurrence: None)
  Receive Date: 20110816
  Receipt Date: 20110804
  Transmission Date: 20111222
  Serious: Yes (Life-Threatening, Hospitalization)
  Sender: FDA-Public Use
  Company Number: GB-SANOFI-AVENTIS-2011SA011658

PATIENT
  Age: 73 Year
  Sex: Male
  Weight: 88 kg

DRUGS (7)
  1. VERAPAMIL [Concomitant]
     Indication: ATRIAL FIBRILLATION
     Route: 048
     Dates: start: 20100713
  2. GLICLAZIDE [Concomitant]
     Route: 048
     Dates: start: 20020208
  3. MULTAQ [Suspect]
     Indication: ATRIAL FIBRILLATION
     Route: 048
     Dates: start: 20101129, end: 20110222
  4. OLMESARTAN MEDOXOMIL [Concomitant]
     Indication: BLOOD PRESSURE
     Route: 048
  5. METFORMIN HCL [Concomitant]
     Route: 048
     Dates: start: 20060612
  6. INSULIN [Concomitant]
     Route: 065
  7. WARFARIN SODIUM [Concomitant]
     Dates: start: 20060512

REACTIONS (1)
  - HYPERTENSIVE CRISIS [None]
